FAERS Safety Report 21948712 (Version 2)
Quarter: 2023Q1

REPORT INFORMATION
  Report Type: Spontaneous
  Country: US (occurrence: US)
  Receive Date: 20230203
  Receipt Date: 20230306
  Transmission Date: 20230418
  Serious: No
  Sender: FDA-Public Use
  Company Number: US-TAKEDA-2023TUS011101

PATIENT
  Sex: Female
  Weight: 70.295 kg

DRUGS (3)
  1. VYVANSE [Suspect]
     Active Substance: LISDEXAMFETAMINE DIMESYLATE
     Indication: Attention deficit hyperactivity disorder
     Dosage: 20 MILLIGRAM, QD
     Route: 065
  2. VYVANSE [Suspect]
     Active Substance: LISDEXAMFETAMINE DIMESYLATE
     Dosage: 20 MILLIGRAM, QD
     Route: 048
     Dates: start: 20210402
  3. VALIUM [Concomitant]
     Active Substance: DIAZEPAM
     Indication: Anxiety
     Dosage: UNK UNK, QD
     Route: 048

REACTIONS (5)
  - Weight increased [Recovered/Resolved]
  - Lethargy [Recovered/Resolved]
  - Procrastination [Recovered/Resolved]
  - Fatigue [Recovered/Resolved]
  - Product use issue [Recovered/Resolved]
